FAERS Safety Report 17421073 (Version 1)
Quarter: 2020Q1

REPORT INFORMATION
  Report Type: Spontaneous
  Country: FR (occurrence: FR)
  Receive Date: 20200214
  Receipt Date: 20200214
  Transmission Date: 20200409
  Serious: Yes (Hospitalization)
  Sender: FDA-Public Use
  Company Number: FR-MYLANLABS-2020M1015869

PATIENT
  Age: 80 Year
  Sex: Male

DRUGS (4)
  1. LEVOFLOXACINE ARROW [Suspect]
     Active Substance: LEVOFLOXACIN
     Indication: SEPTIC ARTHRITIS STAPHYLOCOCCAL
     Route: 048
     Dates: start: 20190609, end: 20190615
  2. CLOXACILLINE ARROW [Suspect]
     Active Substance: CLOXACILLIN SODIUM
     Indication: SEPTIC ARTHRITIS STAPHYLOCOCCAL
     Route: 041
     Dates: start: 20190606, end: 20190615
  3. RIFADINE                           /00146901/ [Suspect]
     Active Substance: RIFAMPIN
     Indication: SEPTIC ARTHRITIS STAPHYLOCOCCAL
     Dosage: 1200 MILLIGRAM, QD
     Route: 042
     Dates: start: 20190614, end: 20190615
  4. PANTOPRAZOLE MYLAN 40 MG, COMPRIM? GASTRO-R?SISTANT [Suspect]
     Active Substance: PANTOPRAZOLE SODIUM
     Indication: PEPTIC ULCER
     Route: 048
     Dates: start: 20190605, end: 20190619

REACTIONS (4)
  - Purpura [Recovered/Resolved]
  - Acute kidney injury [Recovered/Resolved]
  - Pruritus [Recovered/Resolved]
  - Rash maculo-papular [Recovered/Resolved]

NARRATIVE: CASE EVENT DATE: 20190614
